FAERS Safety Report 13546481 (Version 2)
Quarter: 2017Q2

REPORT INFORMATION
  Report Type: Spontaneous
  Country: DE (occurrence: DE)
  Receive Date: 20170515
  Receipt Date: 20170607
  Transmission Date: 20170830
  Serious: Yes (Other)
  Sender: FDA-Public Use
  Company Number: DE-ASTELLAS-2017US012931

PATIENT
  Sex: Female
  Weight: 47 kg

DRUGS (2)
  1. MODIGRAF [Suspect]
     Active Substance: TACROLIMUS
     Indication: LUNG TRANSPLANT
     Dosage: 3?0.2 MG IN THE MORNING AND 2?0.2 MG IN THE EVENING
     Route: 048
  2. MODIGRAF [Suspect]
     Active Substance: TACROLIMUS
     Indication: IMMUNOSUPPRESSION

REACTIONS (5)
  - Drug ineffective [Unknown]
  - Immunosuppressant drug level increased [Unknown]
  - Intentional product misuse [Unknown]
  - Drug level fluctuating [Unknown]
  - Product quality control issue [Recovered/Resolved]

NARRATIVE: CASE EVENT DATE: 201703
